FAERS Safety Report 10867930 (Version 1)
Quarter: 2015Q1

REPORT INFORMATION
  Report Type: Spontaneous
  Country: US (occurrence: US)
  Receive Date: 20150225
  Receipt Date: 20150225
  Transmission Date: 20150721
  Serious: No
  Sender: FDA-Public Use
  Company Number: US-VIVUS-2015V1000028

PATIENT
  Age: 66 Year
  Sex: Male
  Weight: 93.07 kg

DRUGS (6)
  1. STENDRA [Suspect]
     Active Substance: AVANAFIL
     Indication: ERECTILE DYSFUNCTION
     Route: 048
     Dates: start: 201407
  2. STENDRA [Suspect]
     Active Substance: AVANAFIL
     Route: 048
     Dates: start: 201410
  3. METFORMIN [Concomitant]
     Active Substance: METFORMIN HYDROCHLORIDE
  4. AMARYL [Concomitant]
     Active Substance: GLIMEPIRIDE
  5. STENDRA [Suspect]
     Active Substance: AVANAFIL
     Route: 048
  6. FARXIGA [Concomitant]
     Active Substance: DAPAGLIFLOZIN PROPANEDIOL

REACTIONS (1)
  - Drug ineffective [Unknown]
